FAERS Safety Report 4615675-1 (Version None)
Quarter: 2005Q1

REPORT INFORMATION
  Report Type: 
  Country: None (occurrence: None)
  Receive Date: 20050317
  Receipt Date: 20050311
  Transmission Date: 20050727
  Serious: Yes (Hospitalization, Other)
  Sender: FDA-Public Use
  Company Number: KII-2005-0015464

PATIENT
  Age: 67 Year
  Sex: Male

DRUGS (3)
  1. OXYCONTIN [Suspect]
     Dosage: SEE TEXT, ORAL
     Route: 048
  2. ACETAMINOPHEN AND OXYCODONE HCL [Suspect]
     Dosage: SEE TEXT, ORAL
     Route: 048
  3. LITHIUM CARBONATE [Suspect]
     Dosage: ORAL
     Route: 048

REACTIONS (7)
  - FLUSHING [None]
  - INTENTIONAL MISUSE [None]
  - OXYGEN SATURATION DECREASED [None]
  - RASH [None]
  - RESPIRATORY RATE DECREASED [None]
  - SOMNOLENCE [None]
  - VOMITING [None]
